FAERS Safety Report 17930480 (Version 3)
Quarter: 2020Q3

REPORT INFORMATION
  Report Type: Spontaneous
  Country: US (occurrence: US)
  Receive Date: 20200623
  Receipt Date: 20200709
  Transmission Date: 20201103
  Serious: Yes (Other)
  Sender: FDA-Public Use
  Company Number: US-AMGEN-USASP2020096612

PATIENT
  Age: 75 Year
  Sex: Female

DRUGS (2)
  1. OTEZLA [Suspect]
     Active Substance: APREMILAST
     Indication: PSORIATIC ARTHROPATHY
     Dosage: UNK, BID
     Route: 048
     Dates: start: 20170206, end: 2020
  2. OTEZLA [Suspect]
     Active Substance: APREMILAST
     Indication: PSORIASIS
     Dosage: UNK
     Route: 048
     Dates: start: 20200702

REACTIONS (5)
  - Viral infection [Recovered/Resolved]
  - Blood immunoglobulin A abnormal [Unknown]
  - Arthralgia [Unknown]
  - Blood immunoglobulin E abnormal [Unknown]
  - Carbohydrate metabolism disorder [Not Recovered/Not Resolved]

NARRATIVE: CASE EVENT DATE: 2017
